FAERS Safety Report 13876168 (Version 3)
Quarter: 2017Q3

REPORT INFORMATION
  Report Type: Spontaneous
  Country: US (occurrence: US)
  Receive Date: 20170817
  Receipt Date: 20170921
  Transmission Date: 20171127
  Serious: No
  Sender: FDA-Public Use
  Company Number: US-PFIZER INC-2017356457

PATIENT
  Age: 54 Year
  Sex: Male

DRUGS (3)
  1. NICOTINE TRANSDERMAL SYSTEM [Concomitant]
     Active Substance: NICOTINE
     Dosage: 21 MG, 1X/DAY
     Dates: start: 20170813
  2. NICOTROL [Suspect]
     Active Substance: NICOTINE
     Indication: SMOKING CESSATION THERAPY
     Dosage: 10 MG, 1X/DAY (OVER THE WHOLE DAY)
     Dates: start: 20170813
  3. NICOTINE GUM [Concomitant]
     Active Substance: NICOTINE
     Dosage: 6 MG, DAILY (2 MG + 4 MG NICOTINE GUM (ONE OF EACH A DAY))
     Dates: start: 20170813

REACTIONS (2)
  - Underdose [Recovered/Resolved]
  - Paraesthesia oral [Recovered/Resolved]

NARRATIVE: CASE EVENT DATE: 20170813
